FAERS Safety Report 5090062-3 (Version None)
Quarter: 2006Q3

REPORT INFORMATION
  Report Type: 
  Country: None (occurrence: None)
  Receive Date: 20060828
  Receipt Date: 20060822
  Transmission Date: 20061208
  Serious: Yes (Hospitalization, Disabling)
  Sender: FDA-Public Use
  Company Number: PHRM2006FR02364

PATIENT
  Sex: Female
  Weight: 62 kg

DRUGS (13)
  1. FUROSEMIDE [Concomitant]
  2. ALDACTONE [Concomitant]
  3. ZESTRIL [Concomitant]
  4. CARDIOCOR [Concomitant]
     Route: 048
  5. TAHOR [Concomitant]
  6. ASPIRIN [Concomitant]
  7. PREVISCAN [Concomitant]
  8. DISCOTRINE [Concomitant]
  9. FLUOXETINE [Concomitant]
  10. FERROGRAD [Concomitant]
  11. SPECIAFOLDINE [Concomitant]
  12. NEORECORMON [Concomitant]
  13. ZOMETA [Suspect]
     Indication: METASTASES TO BONE
     Route: 042

REACTIONS (4)
  - MOUTH HAEMORRHAGE [None]
  - OSTEONECROSIS [None]
  - PAIN IN JAW [None]
  - SURGERY [None]
